FAERS Safety Report 25968933 (Version 2)
Quarter: 2025Q4

REPORT INFORMATION
  Report Type: Spontaneous
  Country: US (occurrence: US)
  Receive Date: 20251028
  Receipt Date: 20251106
  Transmission Date: 20260117
  Serious: No
  Sender: CSL Plasma
  Company Number: US-CSL-2025-005840

PATIENT
  Age: 32 Year
  Sex: Female

DRUGS (1)
  1. ANTICOAGULANT SODIUM CITRATE [Suspect]
     Active Substance: SODIUM CITRATE
     Indication: Anticoagulant therapy

REACTIONS (2)
  - Product container issue [Recovered/Resolved]
  - Product package associated injury [Unknown]

NARRATIVE: CASE EVENT DATE: 20251006
